FAERS Safety Report 5106075-9 (Version None)
Quarter: 2006Q3

REPORT INFORMATION
  Report Type: 
  Country: None (occurrence: None)
  Receive Date: 20060912
  Receipt Date: 20060830
  Transmission Date: 20061208
  Serious: Yes (Other)
  Sender: FDA-Public Use
  Company Number: 2006105994

PATIENT
  Age: 71 Year
  Sex: Male
  Weight: 113.3993 kg

DRUGS (10)
  1. GEODON [Suspect]
     Indication: AGITATION
     Dosage: 40 MG (40 MG, EVERY DAY),
  2. LEXAPRO [Concomitant]
  3. VALSARTAN [Concomitant]
  4. ATENOLOL [Concomitant]
  5. NORVASC [Concomitant]
  6. HYDROCHLOROTHIAZIDE [Concomitant]
  7. LAMICTAL [Concomitant]
  8. ALL OTHER THERAPEUTIC PRODUCTS (ALL OTHER THERAPEUTIC PRODUCTS) [Concomitant]
  9. ALL OTHER THERAPEUTIC PRODUCTS (ALL OTHER THERAPEUTIC PRODUCTS) [Concomitant]
  10. VITAMINS (VITAMINS) [Concomitant]

REACTIONS (1)
  - CARDIAC FAILURE CONGESTIVE [None]
